FAERS Safety Report 12055116 (Version 4)
Quarter: 2018Q2

REPORT INFORMATION
  Report Type: Spontaneous
  Country: US (occurrence: US)
  Receive Date: 20160209
  Receipt Date: 20180530
  Transmission Date: 20180711
  Serious: Yes (Other)
  Sender: FDA-Public Use
  Company Number: US-BIOGEN-2015BI130775

PATIENT
  Age: 38 Year
  Sex: Female

DRUGS (2)
  1. TECFIDERA [Suspect]
     Active Substance: DIMETHYL FUMARATE
     Indication: MULTIPLE SCLEROSIS
     Route: 065
     Dates: start: 20131011
  2. TECFIDERA [Suspect]
     Active Substance: DIMETHYL FUMARATE
     Route: 048
     Dates: start: 20131106, end: 20131116

REACTIONS (11)
  - Thyroid size decreased [Unknown]
  - Dyspnoea [Recovered/Resolved]
  - Malignant melanoma [Recovered/Resolved]
  - Blood pressure increased [Recovered/Resolved]
  - Autoimmune thyroiditis [Unknown]
  - Insomnia [Not Recovered/Not Resolved]
  - Heart rate abnormal [Recovered/Resolved]
  - General physical health deterioration [Recovered/Resolved]
  - Uterine disorder [Not Recovered/Not Resolved]
  - Muscle twitching [Not Recovered/Not Resolved]
  - Lung disorder [Not Recovered/Not Resolved]

NARRATIVE: CASE EVENT DATE: 2013
